FAERS Safety Report 5424500-0 (Version None)
Quarter: 2007Q3

REPORT INFORMATION
  Report Type: 
  Country: None (occurrence: None)
  Receive Date: 20070731
  Receipt Date: 20070706
  Transmission Date: 20080115
  Serious: No
  Sender: FDA-Public Use
  Company Number: US200704000667

PATIENT
  Age: 66 Year
  Sex: Female

DRUGS (1)
  1. BYETTA [Suspect]
     Indication: TYPE 2 DIABETES MELLITUS
     Dosage: 5 UG, 2/D, SUBCUTANEOUS
     Route: 058
     Dates: start: 20070305, end: 20070309

REACTIONS (11)
  - ABDOMINAL DISTENSION [None]
  - BLOOD GLUCOSE DECREASED [None]
  - DISORIENTATION [None]
  - HYPERHIDROSIS [None]
  - NAUSEA [None]
  - POSTNASAL DRIP [None]
  - PRURITUS [None]
  - SINUSITIS [None]
  - SWELLING FACE [None]
  - TREMOR [None]
  - VISION BLURRED [None]
